FAERS Safety Report 10102882 (Version 1)
Quarter: 2014Q2

REPORT INFORMATION
  Report Type: Spontaneous
  Country: US (occurrence: US)
  Receive Date: 20140424
  Receipt Date: 20140424
  Transmission Date: 20141212
  Serious: No
  Sender: FDA-Public Use
  Company Number: US-BRISTOL-MYERS SQUIBB COMPANY-19968478

PATIENT
  Age: 65 Year
  Sex: Female
  Weight: 82.54 kg

DRUGS (4)
  1. ELIQUIS [Suspect]
  2. JANUVIA [Suspect]
  3. METOPROLOL [Concomitant]
  4. CHOLESTEROL MEDICATION [Concomitant]

REACTIONS (8)
  - Insomnia [Unknown]
  - Pruritus [Unknown]
  - Feeling jittery [Unknown]
  - Muscle twitching [Unknown]
  - Headache [Unknown]
  - Back pain [Unknown]
  - Joint swelling [Unknown]
  - Dry mouth [Unknown]
